FAERS Safety Report 22147530 (Version 1)
Quarter: 2023Q1

REPORT INFORMATION
  Report Type: Spontaneous
  Country: US (occurrence: None)
  Receive Date: 20230328
  Receipt Date: 20230328
  Transmission Date: 20230418
  Serious: Yes (unspecified)
  Sender: FDA-Public Use
  Company Number: None

PATIENT
  Sex: 0

DRUGS (2)
  1. TIROSINT-SOL [Suspect]
     Active Substance: LEVOTHYROXINE SODIUM
     Indication: Autoimmune thyroiditis
     Dosage: OTHER STRENGTH : MICROGRAMS/ML;?OTHER QUANTITY : 1 AMPULE;?
     Route: 048
     Dates: start: 20221201, end: 20221212
  2. TIROSINT-SOL [Suspect]
     Active Substance: LEVOTHYROXINE SODIUM
     Indication: Hypothyroidism

REACTIONS (5)
  - Fatigue [None]
  - Myalgia [None]
  - Mental impairment [None]
  - Arthralgia [None]
  - Therapy cessation [None]

NARRATIVE: CASE EVENT DATE: 20221208
